FAERS Safety Report 20353962 (Version 1)
Quarter: 2022Q1

REPORT INFORMATION
  Report Type: Spontaneous
  Country: JP (occurrence: JP)
  Receive Date: 20220120
  Receipt Date: 20220120
  Transmission Date: 20220423
  Serious: Yes (Death)
  Sender: FDA-Public Use
  Company Number: JP-NOVARTISPH-NVSJ2021JP020849

PATIENT
  Age: 95 Year
  Sex: Male

DRUGS (2)
  1. ENTRESTO [Suspect]
     Active Substance: SACUBITRIL\VALSARTAN
     Indication: Cardiac failure chronic
     Dosage: UNK
     Route: 048
     Dates: start: 20211210, end: 20211225
  2. CARPERITIDE [Concomitant]
     Active Substance: CARPERITIDE
     Indication: Cardiac failure chronic
     Dosage: UNK
     Route: 065
     Dates: start: 20211213

REACTIONS (3)
  - Condition aggravated [Fatal]
  - Cardiac failure chronic [Fatal]
  - Disease progression [Fatal]

NARRATIVE: CASE EVENT DATE: 20211213
